FAERS Safety Report 10153206 (Version 3)
Quarter: 2014Q4

REPORT INFORMATION
  Report Type: Report from Study
  Country: US (occurrence: US)
  Receive Date: 20140505
  Receipt Date: 20141209
  Transmission Date: 20150528
  Serious: No
  Sender: FDA-Public Use
  Company Number: US-VERTEX PHARMACEUTICALS INC-2014-002173

PATIENT
  Sex: Female

DRUGS (3)
  1. IVACAFTOR [Suspect]
     Active Substance: IVACAFTOR
     Indication: CYSTIC FIBROSIS
     Dosage: 150 MG, QD
     Route: 048
     Dates: start: 20130611, end: 201309
  2. IVACAFTOR [Interacting]
     Active Substance: IVACAFTOR
     Dosage: 150 MG, UNK
     Route: 048
     Dates: start: 20140811, end: 20141201
  3. ANTIBIOTICS [Interacting]
     Active Substance: UNSPECIFIED INGREDIENT
     Indication: BACTERIAL INFECTION
     Route: 065

REACTIONS (2)
  - Drug interaction [Unknown]
  - Treatment noncompliance [Unknown]
